FAERS Safety Report 10666431 (Version 2)
Quarter: 2015Q1

REPORT INFORMATION
  Report Type: Spontaneous
  Country: JP (occurrence: JP)
  Receive Date: 20141221
  Receipt Date: 20150331
  Transmission Date: 20150720
  Serious: Yes (Life-Threatening, Hospitalization)
  Sender: FDA-Public Use
  Company Number: JP-009507513-1412JPN006875

PATIENT
  Age: 59 Year
  Sex: Female
  Weight: 45 kg

DRUGS (3)
  1. PEGINTRON [Suspect]
     Active Substance: PEGINTERFERON ALFA-2B
     Indication: HEPATITIS C
     Dosage: 80 MICROGRAM, QW
     Route: 058
     Dates: start: 20140221, end: 20140718
  2. REBETOL [Suspect]
     Active Substance: RIBAVIRIN
     Indication: HEPATITIS C
     Dosage: TWICE A DAY ( 200 MG, 400 MG)
     Route: 048
     Dates: start: 20140221, end: 20140720
  3. SIMEPREVIR [Suspect]
     Active Substance: SIMEPREVIR
     Indication: HEPATITIS C
     Dosage: 100 MG, QD
     Route: 048
     Dates: start: 20140221, end: 20140515

REACTIONS (4)
  - Colitis ischaemic [Recovered/Resolved]
  - Pyelocaliectasis [Unknown]
  - Renal cyst [Unknown]
  - Ascites [Unknown]

NARRATIVE: CASE EVENT DATE: 20140721
